FAERS Safety Report 11593923 (Version 1)
Quarter: 2015Q4

REPORT INFORMATION
  Report Type: Spontaneous
  Country: US (occurrence: US)
  Receive Date: 20151005
  Receipt Date: 20151005
  Transmission Date: 20160304
  Serious: No
  Sender: FDA-Public Use
  Company Number: US-ELI_LILLY_AND_COMPANY-US201509003472

PATIENT
  Sex: Male

DRUGS (1)
  1. CIALIS [Suspect]
     Active Substance: TADALAFIL
     Indication: ERECTILE DYSFUNCTION
     Dosage: 2.5 MG, PRN
     Route: 065
     Dates: start: 20150909

REACTIONS (8)
  - Drug ineffective [Unknown]
  - Medication error [Unknown]
  - Nasal congestion [Unknown]
  - Nasopharyngitis [Unknown]
  - Anxiety [Unknown]
  - Pain [Unknown]
  - Ocular hyperaemia [Unknown]
  - Nausea [Unknown]
